FAERS Safety Report 7110157-X (Version None)
Quarter: 2010Q4

REPORT INFORMATION
  Report Type: 
  Country: None (occurrence: None)
  Receive Date: 20101118
  Receipt Date: 20101109
  Transmission Date: 20110411
  Serious: Yes (Hospitalization)
  Sender: FDA-Public Use
  Company Number: CH-NOVOPROD-318220

PATIENT
  Age: 49 Year
  Sex: Female

DRUGS (3)
  1. NOVOMIX 30 [Suspect]
     Indication: PRODUCT USED FOR UNKNOWN INDICATION
     Dosage: 2 X 30 U
     Route: 058
     Dates: start: 20090101
  2. NOVOMIX 30 [Suspect]
     Dosage: 2 X 20 U
     Route: 058
  3. GLUCOPHAGE [Suspect]
     Indication: PRODUCT USED FOR UNKNOWN INDICATION
     Dosage: 3 X 850 MG
     Route: 048

REACTIONS (3)
  - HYPOGLYCAEMIA [None]
  - PALPITATIONS [None]
  - SOMNOLENCE [None]
